FAERS Safety Report 24707762 (Version 1)
Quarter: 2024Q4

REPORT INFORMATION
  Report Type: Spontaneous
  Country: IT (occurrence: IT)
  Receive Date: 20241206
  Receipt Date: 20241206
  Transmission Date: 20250115
  Serious: Yes (Other)
  Sender: NOVARTIS
  Company Number: IT-002147023-NVSC2024IT232508

PATIENT
  Sex: Female

DRUGS (1)
  1. KYMRIAH [Suspect]
     Active Substance: TISAGENLECLEUCEL
     Indication: B-cell lymphoma
     Dosage: UNK, ONCE/SINGLE
     Route: 042
     Dates: start: 202105, end: 202105

REACTIONS (8)
  - Hypoxia [Unknown]
  - Cytokine release syndrome [Unknown]
  - B-cell lymphoma recurrent [Unknown]
  - Pyrexia [Unknown]
  - Hypotension [Unknown]
  - Interleukin level increased [Unknown]
  - Minimal residual disease [Unknown]
  - Chimerism [Unknown]

NARRATIVE: CASE EVENT DATE: 20210101
